FAERS Safety Report 20825654 (Version 1)
Quarter: 2022Q2

REPORT INFORMATION
  Report Type: Spontaneous
  Country: CN (occurrence: CN)
  Receive Date: 20220513
  Receipt Date: 20220513
  Transmission Date: 20220721
  Serious: Yes (Hospitalization)
  Sender: FDA-Public Use
  Company Number: CN-NOVARTISPH-NVSC2022CN109180

PATIENT
  Age: 49 Year
  Sex: Male
  Weight: 70 kg

DRUGS (5)
  1. AZOPT [Suspect]
     Active Substance: BRINZOLAMIDE
     Indication: Intraocular pressure decreased
     Dosage: 1 DOSAGE FORM, BID
     Route: 047
     Dates: start: 20211231, end: 20220130
  2. TOBRAMYCIN AND DEXAMETHASONE [Concomitant]
     Active Substance: DEXAMETHASONE\TOBRAMYCIN
     Indication: Inflammation
     Dosage: 1 DOSAGE FORM, QID
     Route: 047
     Dates: start: 20211231, end: 20220130
  3. PRANOPROFEN [Concomitant]
     Active Substance: PRANOPROFEN
     Indication: Inflammation
     Dosage: 1 DOSAGE FORM, QID
     Route: 047
     Dates: start: 20211231, end: 20220130
  4. MANNITOL [Concomitant]
     Active Substance: MANNITOL
     Indication: Intraocular pressure decreased
     Dosage: UNK
     Route: 065
  5. TAPROS [Concomitant]
     Indication: Intraocular pressure decreased
     Dosage: 1 DOSAGE FORM, QD
     Route: 047
     Dates: start: 20211231, end: 20220130

REACTIONS (1)
  - Corneal erosion [Unknown]

NARRATIVE: CASE EVENT DATE: 20220130
